FAERS Safety Report 10643614 (Version 1)
Quarter: 2014Q4

REPORT INFORMATION
  Report Type: Spontaneous
  Country: US (occurrence: US)
  Receive Date: 20141210
  Receipt Date: 20141210
  Transmission Date: 20150529
  Serious: Yes (Other)
  Sender: FDA-Public Use
  Company Number: US-PERRIGO-14US011812

PATIENT
  Age: 44 Year
  Sex: Female

DRUGS (3)
  1. MUPIROCIN 2% RX 3C1 [Suspect]
     Active Substance: MUPIROCIN
     Indication: BLISTER
     Route: 061
     Dates: start: 201404, end: 201404
  2. MUPIROCIN 2% RX 3C1 [Suspect]
     Active Substance: MUPIROCIN
     Indication: CELLULITIS
     Dosage: UNK, UNK
     Route: 061
     Dates: start: 2010, end: 2010
  3. SULFAMETHOXAZOLE AND TRIMETHOPRIM [Concomitant]
     Active Substance: SULFAMETHOXAZOLE\TRIMETHOPRIM
     Indication: CELLULITIS
     Dosage: UNK, UNK
     Route: 065
     Dates: start: 2010

REACTIONS (10)
  - Joint warmth [Recovering/Resolving]
  - Urticaria [Recovering/Resolving]
  - Arthralgia [Recovering/Resolving]
  - Serum sickness [Recovering/Resolving]
  - Skin lesion [Recovering/Resolving]
  - Skin burning sensation [Recovering/Resolving]
  - Pyrexia [Recovering/Resolving]
  - Erythema [Recovering/Resolving]
  - Joint swelling [Recovering/Resolving]
  - Pallor [Recovering/Resolving]

NARRATIVE: CASE EVENT DATE: 2010
